FAERS Safety Report 9889597 (Version 1)
Quarter: 2014Q1

REPORT INFORMATION
  Report Type: Spontaneous
  Country: IT (occurrence: IT)
  Receive Date: 20140211
  Receipt Date: 20140211
  Transmission Date: 20141002
  Serious: No
  Sender: FDA-Public Use
  Company Number: PHHY2014IT016604

PATIENT
  Sex: Female

DRUGS (3)
  1. TASIGNA [Suspect]
     Indication: CHRONIC MYELOID LEUKAEMIA
     Dosage: 600 MG, QD
     Route: 048
     Dates: start: 20131029, end: 20131122
  2. TASIGNA [Suspect]
     Dosage: 300 MG, QD
     Route: 048
  3. LANSOPRAZOL TEVA [Concomitant]
     Indication: ABDOMINAL PAIN UPPER
     Dosage: 60 MG
     Route: 048
     Dates: start: 20131119, end: 20140122

REACTIONS (1)
  - Thrombocytopenia [Recovered/Resolved]
